FAERS Safety Report 24993544 (Version 2)
Quarter: 2025Q1

REPORT INFORMATION
  Report Type: Spontaneous
  Country: CA (occurrence: CA)
  Receive Date: 20250221
  Receipt Date: 20250226
  Transmission Date: 20250409
  Serious: Yes (Life-Threatening, Hospitalization)
  Sender: Haleon PLC
  Company Number: CA-SANDOZ-SDZ2023CA034251

PATIENT
  Age: 3 Decade
  Sex: Male

DRUGS (64)
  1. VOLTAREN [Suspect]
     Active Substance: DICLOFENAC SODIUM
     Indication: Neuralgia
     Route: 065
  2. DILAUDID [Suspect]
     Active Substance: HYDROMORPHONE HYDROCHLORIDE
     Indication: Neuralgia
     Dosage: 7 MG, QD (7.0 MG 1 EVERY 1 DAYS)
     Route: 065
  3. DILAUDID [Suspect]
     Active Substance: HYDROMORPHONE HYDROCHLORIDE
     Dosage: 30 MG, QD (30.0 MG 1 EVERY 1 DAYS)
     Route: 065
  4. ADVIL [Suspect]
     Active Substance: IBUPROFEN
     Indication: Neuralgia
     Dosage: 1600.0 MILLIGRAM 1 EVERY 1 DAYS
     Route: 065
  5. NABILONE [Suspect]
     Active Substance: NABILONE
     Indication: Neuralgia
     Dosage: 6 MG, QD (6.0 MG 1 EVERY 1 DAYS)
     Route: 065
  6. NABILONE [Suspect]
     Active Substance: NABILONE
     Dosage: 2 MG, QD (2.0 MG 1 EVERY 1 DAYS)
     Route: 065
  7. NABILONE [Suspect]
     Active Substance: NABILONE
     Route: 065
  8. LIDOCAINE HYDROCHLORIDE [Suspect]
     Active Substance: LIDOCAINE HYDROCHLORIDE
     Indication: Neuralgia
     Route: 042
  9. LIDOCAINE HYDROCHLORIDE [Suspect]
     Active Substance: LIDOCAINE HYDROCHLORIDE
     Route: 065
  10. ACETAMINOPHEN [Suspect]
     Active Substance: ACETAMINOPHEN
     Indication: Neuralgia
     Dosage: 3900 MG, QD (3900.0 MG 1 EVERY 1 DAYS)?MODIFIED-RELEASE FILM-COATED TABLET
     Route: 065
  11. ACETAMINOPHEN [Suspect]
     Active Substance: ACETAMINOPHEN
     Dosage: 2600 MG, QD (2600.0 MG 1 EVERY 1 DAYS)?MODIFIED-RELEASE FILM-COATED TABLET
     Route: 065
  12. ACETAMINOPHEN [Suspect]
     Active Substance: ACETAMINOPHEN
     Route: 065
  13. ACETAMINOPHEN [Suspect]
     Active Substance: ACETAMINOPHEN
     Route: 065
  14. VENLAFAXINE HYDROCHLORIDE [Suspect]
     Active Substance: VENLAFAXINE HYDROCHLORIDE
     Indication: Neuralgia
     Route: 065
  15. VENLAFAXINE HYDROCHLORIDE [Suspect]
     Active Substance: VENLAFAXINE HYDROCHLORIDE
     Route: 065
  16. PHENYTOIN [Suspect]
     Active Substance: PHENYTOIN
     Indication: Neuralgia
     Dosage: 1500 MG, QD
     Route: 065
  17. PHENYTOIN [Suspect]
     Active Substance: PHENYTOIN
     Route: 065
  18. FENTANYL [Suspect]
     Active Substance: FENTANYL
     Indication: Neuralgia
     Dosage: 37.5 MG (37.5 MG (1 EVERY 1 HOURS))
     Route: 065
  19. FENTANYL [Suspect]
     Active Substance: FENTANYL
     Dosage: 25 MG (25 MG (1 EVERY 1 HOURS))
     Route: 065
  20. FENTANYL [Suspect]
     Active Substance: FENTANYL
     Route: 062
  21. FENTANYL [Suspect]
     Active Substance: FENTANYL
     Route: 062
  22. FENTANYL [Suspect]
     Active Substance: FENTANYL
     Route: 065
  23. GABAPENTIN [Suspect]
     Active Substance: GABAPENTIN
     Indication: Neuralgia
     Route: 048
  24. GABAPENTIN [Suspect]
     Active Substance: GABAPENTIN
     Dosage: 3600 MG, QD
     Route: 048
  25. GABAPENTIN [Suspect]
     Active Substance: GABAPENTIN
     Dosage: 900 MG, QD
     Route: 048
  26. GABAPENTIN [Suspect]
     Active Substance: GABAPENTIN
     Dosage: 300 MG, QD
     Route: 048
  27. GABAPENTIN [Suspect]
     Active Substance: GABAPENTIN
     Dosage: 1800 MG, QD
     Route: 048
  28. GABAPENTIN [Suspect]
     Active Substance: GABAPENTIN
     Dosage: 1200 MG, QD
     Route: 048
  29. GABAPENTIN [Suspect]
     Active Substance: GABAPENTIN
     Route: 048
  30. GABAPENTIN [Suspect]
     Active Substance: GABAPENTIN
     Route: 065
  31. GABAPENTIN [Suspect]
     Active Substance: GABAPENTIN
     Route: 065
  32. GABAPENTIN [Suspect]
     Active Substance: GABAPENTIN
     Route: 065
  33. GABAPENTIN [Suspect]
     Active Substance: GABAPENTIN
     Route: 065
  34. GABAPENTIN [Suspect]
     Active Substance: GABAPENTIN
     Route: 065
  35. GABAPENTIN [Suspect]
     Active Substance: GABAPENTIN
     Route: 065
  36. GABAPENTIN [Suspect]
     Active Substance: GABAPENTIN
     Route: 065
  37. GABAPENTIN [Suspect]
     Active Substance: GABAPENTIN
     Route: 065
  38. OLANZAPINE [Suspect]
     Active Substance: OLANZAPINE
     Indication: Neuralgia
     Dosage: 3 MG, QD
     Route: 065
  39. OLANZAPINE [Suspect]
     Active Substance: OLANZAPINE
     Dosage: 2.5 MG, QD
     Route: 065
  40. OLANZAPINE [Suspect]
     Active Substance: OLANZAPINE
     Route: 065
  41. OLANZAPINE [Suspect]
     Active Substance: OLANZAPINE
     Route: 065
  42. OLANZAPINE [Suspect]
     Active Substance: OLANZAPINE
     Dosage: UNK
     Route: 065
  43. OLANZAPINE [Suspect]
     Active Substance: OLANZAPINE
     Dosage: UNK
     Route: 065
  44. OLANZAPINE [Suspect]
     Active Substance: OLANZAPINE
     Dosage: UNK
     Route: 065
  45. OLANZAPINE [Suspect]
     Active Substance: OLANZAPINE
     Dosage: UNK
     Route: 065
  46. HYDROMORPHONE HYDROCHLORIDE [Suspect]
     Active Substance: HYDROMORPHONE HYDROCHLORIDE
     Indication: Neuralgia
     Route: 042
  47. HYDROMORPHONE HYDROCHLORIDE [Suspect]
     Active Substance: HYDROMORPHONE HYDROCHLORIDE
     Route: 030
  48. HYDROMORPHONE HYDROCHLORIDE [Suspect]
     Active Substance: HYDROMORPHONE HYDROCHLORIDE
     Route: 030
  49. HYDROMORPHONE HYDROCHLORIDE [Suspect]
     Active Substance: HYDROMORPHONE HYDROCHLORIDE
     Route: 065
  50. HYDROMORPHONE HYDROCHLORIDE [Suspect]
     Active Substance: HYDROMORPHONE HYDROCHLORIDE
     Route: 065
  51. HYDROMORPHONE HYDROCHLORIDE [Suspect]
     Active Substance: HYDROMORPHONE HYDROCHLORIDE
     Route: 065
  52. HUMAN IMMUNOGLOBULIN G [Suspect]
     Active Substance: HUMAN IMMUNOGLOBULIN G
     Indication: Guillain-Barre syndrome
     Route: 042
  53. ZOPICLONE [Suspect]
     Active Substance: ZOPICLONE
     Indication: Neuralgia
     Route: 065
  54. ZOPICLONE [Suspect]
     Active Substance: ZOPICLONE
     Route: 065
  55. KETAMINE [Suspect]
     Active Substance: KETAMINE
     Indication: Neuralgia
     Dosage: 30 MG, QD
     Route: 042
  56. KETAMINE [Suspect]
     Active Substance: KETAMINE
     Dosage: 40 MG, QD
     Route: 048
  57. KETAMINE [Suspect]
     Active Substance: KETAMINE
     Route: 042
  58. KETAMINE [Suspect]
     Active Substance: KETAMINE
     Route: 048
  59. HYDROMORPHONE [Suspect]
     Active Substance: HYDROMORPHONE
     Indication: Neuralgia
     Route: 048
  60. ACETAMINOPHEN [Suspect]
     Active Substance: ACETAMINOPHEN
     Indication: Neuralgia
     Dosage: 3900.0 MILLIGRAM 1 EVERY 1 DAYS
     Route: 065
  61. FENTANYL [Suspect]
     Active Substance: FENTANYL
     Indication: Neuralgia
     Route: 065
  62. LIDOCAINE [Suspect]
     Active Substance: LIDOCAINE
     Indication: Neuralgia
     Route: 061
  63. ACETAMINOPHEN [Suspect]
     Active Substance: ACETAMINOPHEN
     Indication: Neuralgia
     Route: 062
  64. ACETAMINOPHEN [Suspect]
     Active Substance: ACETAMINOPHEN
     Route: 062

REACTIONS (4)
  - Inspiratory capacity decreased [Unknown]
  - Off label use [Unknown]
  - Drug ineffective for unapproved indication [Unknown]
  - Drug ineffective [Unknown]
